FAERS Safety Report 15293483 (Version 1)
Quarter: 2018Q3

REPORT INFORMATION
  Report Type: Spontaneous
  Country: US (occurrence: US)
  Receive Date: 20180820
  Receipt Date: 20180820
  Transmission Date: 20181010
  Serious: No
  Sender: FDA-Public Use
  Company Number: US-TEVA-2018-US-944224

PATIENT
  Age: 70 Year
  Sex: Male

DRUGS (1)
  1. VALSARTAN W/HYDROCHLOROTHIAZIDE [Suspect]
     Active Substance: HYDROCHLOROTHIAZIDE\VALSARTAN
     Indication: HYPERTENSION
     Dosage: DOSE STRENGTH: 160/12.5MG
     Route: 065
     Dates: start: 2014

REACTIONS (1)
  - Throat clearing [Unknown]

NARRATIVE: CASE EVENT DATE: 2014
